FAERS Safety Report 14741288 (Version 2)
Quarter: 2018Q2

REPORT INFORMATION
  Report Type: Report from Study
  Country: JP (occurrence: JP)
  Receive Date: 20180410
  Receipt Date: 20180523
  Transmission Date: 20180711
  Serious: Yes (Death, Hospitalization)
  Sender: FDA-Public Use
  Company Number: JP-ACTELION-A-CH2017-156141

PATIENT
  Age: 76 Year
  Sex: Male

DRUGS (11)
  1. HEPARIN SODIUM. [Concomitant]
     Active Substance: HEPARIN SODIUM
  2. DOBUTREX [Concomitant]
     Active Substance: DOBUTAMINE HYDROCHLORIDE
  3. FUROSEMIDE. [Concomitant]
     Active Substance: FUROSEMIDE
  4. OXYGEN. [Concomitant]
     Active Substance: OXYGEN
  5. OPSUMIT [Suspect]
     Active Substance: MACITENTAN
     Indication: PULMONARY ARTERIAL HYPERTENSION
     Dosage: 10 MG, QD
     Route: 048
     Dates: start: 20170224, end: 20170802
  6. SPIRONOLACTONE. [Concomitant]
     Active Substance: SPIRONOLACTONE
  7. REVATIO [Concomitant]
     Active Substance: SILDENAFIL CITRATE
  8. WARFARIN [Concomitant]
     Active Substance: WARFARIN
  9. CARELOAD [Concomitant]
     Active Substance: BERAPROST SODIUM
  10. LASIX [Concomitant]
     Active Substance: FUROSEMIDE
  11. AZOSEMIDE [Concomitant]
     Active Substance: AZOSEMIDE

REACTIONS (8)
  - Haemoglobin decreased [Not Recovered/Not Resolved]
  - Malaise [Not Recovered/Not Resolved]
  - Platelet count increased [Recovered/Resolved]
  - Red blood cell count decreased [Not Recovered/Not Resolved]
  - Gastric ulcer [Recovered/Resolved]
  - Haematocrit decreased [Not Recovered/Not Resolved]
  - Pneumonia [Fatal]
  - Anaemia [Not Recovered/Not Resolved]

NARRATIVE: CASE EVENT DATE: 20170228
